FAERS Safety Report 8844988 (Version 1)
Quarter: 2012Q4

REPORT INFORMATION
  Report Type: Spontaneous
  Country: US (occurrence: None)
  Receive Date: 20121002
  Receipt Date: 20121002
  Transmission Date: 20130627
  Serious: Yes (Hospitalization, Other)
  Sender: FDA-Public Use
  Company Number: RB-37469-2012

PATIENT
  Sex: Female

DRUGS (3)
  1. SUBOXONE [Suspect]
     Indication: DRUG DEPENDENCE
     Route: 064
     Dates: start: 201104, end: 201106
  2. SUBUTEX [Suspect]
     Indication: DRUG DEPENDENCE
     Route: 064
     Dates: start: 201106, end: 201112
  3. METHADONE [Suspect]
     Indication: DRUG DEPENDENCE
     Dosage: (Dose unknown Transplacental)
     Route: 064
     Dates: start: 201112, end: 20120106

REACTIONS (2)
  - Foetal exposure during pregnancy [None]
  - Drug hypersensitivity [None]
